FAERS Safety Report 9538697 (Version 3)
Quarter: 2014Q3

REPORT INFORMATION
  Report Type: Spontaneous
  Country: US (occurrence: None)
  Receive Date: 20130917
  Receipt Date: 20140702
  Transmission Date: 20150326
  Serious: Yes (Other)
  Sender: FDA-Public Use
  Company Number: 2013-US-000315

PATIENT
  Age: 45 Year
  Sex: Female

DRUGS (5)
  1. LYRICA [Concomitant]
     Active Substance: PREGABALIN
  2. XYREM [Suspect]
     Active Substance: SODIUM OXYBATE
     Indication: SOMNOLENCE
     Dosage: 2.25 BID FOR 1WK?3G BID FOR 1WK?3.75G BID FOR 1WK
     Route: 048
     Dates: start: 20110321
  3. OPANA (OXYMORPHONE HYDROCHLORIDE) [Concomitant]
  4. XYREM [Suspect]
     Active Substance: SODIUM OXYBATE
     Indication: CATAPLEXY
     Dosage: 2.25 BID FOR 1WK?3G BID FOR 1WK?3.75G BID FOR 1WK
     Route: 048
     Dates: start: 20110321
  5. XYREM [Suspect]
     Active Substance: SODIUM OXYBATE
     Indication: NARCOLEPSY
     Dosage: 2.25 BID FOR 1WK?3G BID FOR 1WK?3.75G BID FOR 1WK
     Route: 048
     Dates: start: 20110321

REACTIONS (6)
  - Pain [None]
  - Intervertebral disc degeneration [None]
  - Concussion [None]
  - Fall [None]
  - Enuresis [None]
  - Lumbar spinal stenosis [None]

NARRATIVE: CASE EVENT DATE: 201301
